FAERS Safety Report 19051657 (Version 1)
Quarter: 2021Q1

REPORT INFORMATION
  Report Type: Spontaneous
  Country: FR (occurrence: FR)
  Receive Date: 20210324
  Receipt Date: 20210324
  Transmission Date: 20210420
  Serious: Yes (Other)
  Sender: FDA-Public Use
  Company Number: FR-MYLANLABS-2021M1017107

PATIENT
  Age: 56 Year
  Sex: Male

DRUGS (13)
  1. MESTINON [Concomitant]
     Active Substance: PYRIDOSTIGMINE BROMIDE
     Indication: MUSCULAR WEAKNESS
     Dosage: 120 MILLIGRAM, QD, 1?0?1
     Route: 048
     Dates: start: 201702
  2. OLANZAPINE. [Suspect]
     Active Substance: OLANZAPINE
     Indication: SCHIZOPHRENIA
     Dosage: 1?0?1
     Route: 048
     Dates: start: 20201120, end: 20210129
  3. LASILIX                            /00032601/ [Concomitant]
     Active Substance: FUROSEMIDE
     Indication: HYPERTENSION
     Dosage: 40 MILLIGRAM, QD, 1?0?0
     Route: 048
     Dates: start: 201702
  4. HALDOL DECANOAS [Concomitant]
     Active Substance: HALOPERIDOL DECANOATE
     Indication: SCHIZOPHRENIA
     Dosage: 1 DOSAGE FORM, 28D CYCLE
     Route: 030
     Dates: start: 201507
  5. SODIUM VALPROATE [Concomitant]
     Active Substance: VALPROATE SODIUM
     Indication: SCHIZOPHRENIA
     Dosage: 500 MILLIGRAM, QD, 1?0?0
     Route: 048
     Dates: start: 201504
  6. ATENOLOL. [Concomitant]
     Active Substance: ATENOLOL
     Indication: HYPERTENSION
     Dosage: 50 MILLIGRAM, QD, 1?0?0
     Route: 048
     Dates: start: 201702
  7. TERCIAN                            /00759301/ [Concomitant]
     Active Substance: CYAMEMAZINE
     Indication: SCHIZOPHRENIA
     Dosage: 1?0?1
     Route: 048
     Dates: start: 201504
  8. DIFFU K [Concomitant]
     Active Substance: POTASSIUM CHLORIDE
     Indication: HYPOKALAEMIA
     Dosage: 2 DOSAGE FORM, QD, 1?0?1
     Route: 048
     Dates: start: 201702
  9. XATRAL                             /00975301/ [Concomitant]
     Active Substance: ALFUZOSIN
     Indication: BENIGN PROSTATIC HYPERPLASIA
     Dosage: 20 MILLIGRAM, QD, 1?0?1
     Route: 048
     Dates: start: 201709
  10. SPIRIVA [Concomitant]
     Active Substance: TIOTROPIUM BROMIDE MONOHYDRATE
     Indication: CHRONIC OBSTRUCTIVE PULMONARY DISEASE
     Dosage: 18 MICROGRAM, QD, 1?0?0
     Route: 048
     Dates: start: 201504
  11. LEPTICUR [Concomitant]
     Active Substance: TROPATEPINE HYDROCHLORIDE
     Indication: PARKINSONISM
     Dosage: 10 MILLIGRAM, QD, 1?0?0
     Route: 048
     Dates: start: 201504
  12. DIAZEPAM. [Concomitant]
     Active Substance: DIAZEPAM
     Indication: ANXIETY
     Dosage: 2 MILLIGRAM, QD, 1?0?0
     Route: 048
     Dates: start: 201504
  13. IPRATROPIUM BROMIDE\FENOTEROL HYDROBROMIDE [Concomitant]
     Active Substance: FENOTEROL HYDROBROMIDE\IPRATROPIUM BROMIDE
     Indication: CHRONIC OBSTRUCTIVE PULMONARY DISEASE
     Dosage: 2 DOSAGE FORM, QD, 1?0?1
     Route: 048
     Dates: start: 201504

REACTIONS (2)
  - Condition aggravated [Not Recovered/Not Resolved]
  - Neutropenia [Recovering/Resolving]

NARRATIVE: CASE EVENT DATE: 20210129
